FAERS Safety Report 8345615-3 (Version None)
Quarter: 2012Q2

REPORT INFORMATION
  Report Type: 
  Country: None (occurrence: None)
  Receive Date: 20120508
  Receipt Date: 20110928
  Transmission Date: 20120825
  Serious: Yes (Hospitalization, Other)
  Sender: FDA-Public Use
  Company Number: US-ROCHE-1001928

PATIENT
  Age: 46 Year
  Sex: Female

DRUGS (2)
  1. MOBIC [Concomitant]
  2. ACTEMRA [Suspect]
     Indication: RHEUMATOID ARTHRITIS

REACTIONS (3)
  - GASTROINTESTINAL PERFORATION [None]
  - DUODENAL ULCER [None]
  - DUODENAL PERFORATION [None]
